FAERS Safety Report 8731045 (Version 2)
Quarter: 2012Q4

REPORT INFORMATION
  Report Type: 
  Country: SI (occurrence: SI)
  Receive Date: 20120820
  Receipt Date: 20120921
  Transmission Date: 20130627
  Serious: Yes (Other)
  Sender: FDA-Public Use
  Company Number: SI-AMGEN-SVNSP2012051488

PATIENT
  Age: 44 Year
  Sex: Male
  Weight: 82 kg

DRUGS (4)
  1. ENBREL [Suspect]
     Indication: ANKYLOSING SPONDYLITIS
     Dosage: 50 mg, weekly
     Route: 058
     Dates: start: 20120403, end: 20120516
  2. CRESTOR [Concomitant]
     Dosage: 20 mg, 1x/day
  3. ATACAND [Concomitant]
     Dosage: 5 mg, 1x/day
  4. ZALDIAR [Concomitant]
     Dosage: 325 mg, as needed

REACTIONS (1)
  - Renal failure chronic [Recovering/Resolving]
